FAERS Safety Report 6018147-5 (Version None)
Quarter: 2008Q4

REPORT INFORMATION
  Report Type: 
  Country: None (occurrence: None)
  Receive Date: 20081223
  Receipt Date: 20081215
  Transmission Date: 20090506
  Serious: Yes (Death, Congenital Anomaly)
  Sender: FDA-Public Use
  Company Number: FR-PFIZER INC-2008155463

PATIENT

DRUGS (1)
  1. TAHOR [Suspect]
     Route: 064
     Dates: end: 20080825

REACTIONS (3)
  - CONGENITAL DIAPHRAGMATIC HERNIA [None]
  - DIAPHRAGMATIC HERNIA [None]
  - DRUG EXPOSURE DURING PREGNANCY [None]
